FAERS Safety Report 8606559-2 (Version None)
Quarter: 2012Q3

REPORT INFORMATION
  Report Type: 
  Country: None (occurrence: None)
  Receive Date: 20120820
  Receipt Date: 20120814
  Transmission Date: 20120928
  Serious: Yes (Other)
  Sender: FDA-Public Use
  Company Number: US-PFIZER INC-2012199296

PATIENT
  Age: 69 Year
  Sex: Female
  Weight: 63.492 kg

DRUGS (3)
  1. ADVIL [Suspect]
     Indication: HEADACHE
     Dosage: 200 MG, AS NEEDED
     Route: 048
  2. JANUMET [Concomitant]
     Indication: DIABETES MELLITUS
     Dosage: 50/500 MG, DAILY
     Route: 048
  3. ADVIL [Suspect]
     Indication: PAIN
     Dosage: 400 MG (TWO TABLETS OF 200 MG), AS NEEDED
     Route: 048

REACTIONS (4)
  - HYPERSENSITIVITY [None]
  - URTICARIA [None]
  - ERYTHEMA [None]
  - BLISTER [None]
